FAERS Safety Report 8827010 (Version 4)
Quarter: 2012Q4

REPORT INFORMATION
  Report Type: 
  Country: US (occurrence: US)
  Receive Date: 20121005
  Receipt Date: 20121210
  Transmission Date: 20130627
  Serious: Yes (Other)
  Sender: FDA-Public Use
  Company Number: US-JNJFOC-20121001742

PATIENT
  Age: 40 None
  Sex: Female
  Weight: 77.11 kg

DRUGS (7)
  1. ZYRTEC [Suspect]
     Route: 048
  2. ZYRTEC [Suspect]
     Indication: PREMEDICATION
     Route: 048
     Dates: start: 20120717
  3. TYLENOL [Suspect]
     Route: 065
  4. TYLENOL [Suspect]
     Indication: PREMEDICATION
     Route: 065
     Dates: start: 20120531
  5. SOLU-MEDROL [Suspect]
     Indication: PRODUCT USED FOR UNKNOWN INDICATION
     Route: 065
  6. PREDNISONE [Suspect]
     Indication: PRODUCT USED FOR UNKNOWN INDICATION
     Dosage: interval of 4 day
     Route: 065
  7. IBUPROFEN [Concomitant]
     Route: 065

REACTIONS (4)
  - Dyspnoea [Recovered/Resolved]
  - Chest discomfort [Recovered/Resolved]
  - Pruritus [Recovered/Resolved]
  - Off label use [Unknown]
